FAERS Safety Report 6745098-0 (Version None)
Quarter: 2010Q2

REPORT INFORMATION
  Report Type: 
  Country: None (occurrence: None)
  Receive Date: 20100527
  Receipt Date: 20100519
  Transmission Date: 20101027
  Serious: Yes (Death)
  Sender: FDA-Public Use
  Company Number: US-AMGEN-QUU413337

PATIENT
  Sex: Male

DRUGS (2)
  1. NPLATE [Suspect]
     Indication: IDIOPATHIC THROMBOCYTOPENIC PURPURA
     Dates: start: 20090515
  2. RITUXIMAB [Concomitant]
     Dates: start: 20090508

REACTIONS (2)
  - DISEASE PROGRESSION [None]
  - PULMONARY FIBROSIS [None]
